FAERS Safety Report 6805671-8 (Version None)
Quarter: 2010Q2

REPORT INFORMATION
  Report Type: 
  Country: None (occurrence: None)
  Receive Date: 20100628
  Receipt Date: 20080207
  Transmission Date: 20101027
  Serious: No
  Sender: FDA-Public Use
  Company Number: US-PFIZER INC-2008012744

PATIENT
  Sex: Female
  Weight: 14.545 kg

DRUGS (7)
  1. GENOTROPIN [Suspect]
     Indication: GROWTH HORMONE DEFICIENCY
     Dates: start: 20080101
  2. PREVACID [Concomitant]
  3. CLONIDINE [Concomitant]
  4. CONCERTA [Concomitant]
  5. MONTELUKAST SODIUM [Concomitant]
  6. PERIACTIN [Concomitant]
  7. ZOMIG [Concomitant]

REACTIONS (1)
  - INJECTION SITE REACTION [None]
